FAERS Safety Report 8545790-1 (Version None)
Quarter: 2012Q3

REPORT INFORMATION
  Report Type: 
  Country: None (occurrence: None)
  Receive Date: 20120727
  Receipt Date: 20120719
  Transmission Date: 20120928
  Serious: Yes (Other)
  Sender: FDA-Public Use
  Company Number: CN-BAXTER-2012BAX012373

PATIENT
  Sex: Female
  Weight: 62 kg

DRUGS (3)
  1. MANNITOL [Suspect]
     Indication: DIZZINESS
  2. MANNITOL [Suspect]
     Indication: HYPERTENSION
     Route: 041
     Dates: start: 20101216, end: 20101216
  3. MANNITOL [Suspect]
     Indication: HEADACHE

REACTIONS (1)
  - RASH ERYTHEMATOUS [None]
